FAERS Safety Report 10233072 (Version 8)
Quarter: 2016Q1

REPORT INFORMATION
  Report Type: Spontaneous
  Country: US (occurrence: US)
  Receive Date: 20140612
  Receipt Date: 20160303
  Transmission Date: 20160525
  Serious: Yes (Hospitalization, Other)
  Sender: FDA-Public Use
  Company Number: US-PFIZER INC-2014157858

PATIENT
  Age: 67 Year
  Sex: Male
  Weight: 119 kg

DRUGS (15)
  1. VITAMIN C [Concomitant]
     Active Substance: ASCORBIC ACID
     Dosage: 1000 MG, DAILY
     Route: 048
  2. FISH OIL [Concomitant]
     Active Substance: FISH OIL
     Dosage: 3-1000 IU, DAILY
     Route: 048
  3. ULTRA PURE FISH OIL [Concomitant]
     Dosage: 700 MG, 2X/DAY
     Route: 048
     Dates: start: 20140514
  4. ZINC CITRATE [Concomitant]
     Active Substance: ZINC CITRATE
     Dosage: 30 MG, 2X/DAY
     Route: 048
     Dates: start: 20140611, end: 20141007
  5. SUTENT [Suspect]
     Active Substance: SUNITINIB MALATE
     Indication: METASTATIC RENAL CELL CARCINOMA
     Dosage: 50 MG, DAILY (50 MG CAPSULE DAILY FOR 20 DAYS)
     Route: 048
     Dates: start: 20140501
  6. SUTENT [Suspect]
     Active Substance: SUNITINIB MALATE
     Dosage: 50 MG, UNK
     Dates: start: 201406
  7. VITAMIN C [Concomitant]
     Active Substance: ASCORBIC ACID
     Dosage: UNK
  8. CALCIUM 500/ VITAMIN D [Concomitant]
     Dosage: CALCIUM-500MG; VITAMIN D: 630MG)
     Route: 048
  9. MAGNESIUM [Concomitant]
     Active Substance: MAGNESIUM
     Dosage: 1 DF, DAILY
     Route: 048
     Dates: end: 20141007
  10. VITAMIN D3 [Concomitant]
     Active Substance: CHOLECALCIFEROL
     Dosage: 5000 IU, UNK (LIQUID ORAL Q ON M, W, F)
     Route: 048
     Dates: end: 20141007
  11. VITAMIN D [Concomitant]
     Active Substance: CHOLECALCIFEROL
     Dosage: UNK
  12. VITAMIN E [Concomitant]
     Active Substance: .ALPHA.-TOCOPHEROL
     Dosage: 1000 IU, DAILY
     Route: 048
     Dates: end: 20140611
  13. CALCIUM [Concomitant]
     Active Substance: CALCIUM
     Dosage: 1 DF, DAILY
     Route: 048
     Dates: end: 20140514
  14. SUTENT [Suspect]
     Active Substance: SUNITINIB MALATE
     Dosage: UNK
     Dates: start: 20140404
  15. CALCIUM CARBONATE. [Concomitant]
     Active Substance: CALCIUM CARBONATE
     Dosage: UNK

REACTIONS (15)
  - Ageusia [Not Recovered/Not Resolved]
  - Disease progression [Unknown]
  - Metastatic renal cell carcinoma [Unknown]
  - Blood creatinine increased [Recovered/Resolved]
  - Cough [Unknown]
  - Rectal haemorrhage [Not Recovered/Not Resolved]
  - Decreased appetite [Not Recovered/Not Resolved]
  - Palmar-plantar erythrodysaesthesia syndrome [Not Recovered/Not Resolved]
  - Constipation [Not Recovered/Not Resolved]
  - Dry skin [Not Recovered/Not Resolved]
  - Deep vein thrombosis [Unknown]
  - Fatigue [Recovered/Resolved]
  - Weight decreased [Recovered/Resolved]
  - Glossodynia [Not Recovered/Not Resolved]
  - Dizziness [Not Recovered/Not Resolved]

NARRATIVE: CASE EVENT DATE: 2014
